FAERS Safety Report 4845580-7 (Version None)
Quarter: 2005Q4

REPORT INFORMATION
  Report Type: 
  Country: None (occurrence: None)
  Receive Date: 20051205
  Receipt Date: 20051005
  Transmission Date: 20060501
  Serious: Yes (Hospitalization)
  Sender: FDA-Public Use
  Company Number: US-MERCK-0510USA04583

PATIENT
  Age: 58 Year
  Sex: Female
  Weight: 80 kg

DRUGS (11)
  1. VIOXX [Suspect]
     Indication: RHEUMATOID ARTHRITIS
     Route: 048
     Dates: end: 20040901
  2. PLAQUENIL [Concomitant]
     Route: 065
  3. METHOTREXATE [Concomitant]
     Route: 065
  4. FOLIC ACID [Concomitant]
     Route: 065
  5. ELAVIL [Concomitant]
     Route: 048
  6. PREDNISONE [Concomitant]
     Route: 065
  7. PAXIL [Concomitant]
     Route: 065
  8. PREMARIN [Concomitant]
     Route: 065
  9. PROVERA [Concomitant]
     Route: 065
  10. DETROL [Concomitant]
     Route: 065
  11. ASPIRIN [Concomitant]
     Route: 065

REACTIONS (5)
  - ADVERSE EVENT [None]
  - ARRHYTHMIA [None]
  - COORDINATION ABNORMAL [None]
  - GASTRIC HAEMORRHAGE [None]
  - RECTAL HAEMORRHAGE [None]
